FAERS Safety Report 8424191-0 (Version None)
Quarter: 2012Q2

REPORT INFORMATION
  Report Type: 
  Country: None (occurrence: None)
  Receive Date: 20120608
  Receipt Date: 20120130
  Transmission Date: 20120825
  Serious: No
  Sender: FDA-Public Use
  Company Number: US-ASTRAZENECA-2012SE06182

PATIENT
  Age: 86 Year
  Sex: Male
  Weight: 62.1 kg

DRUGS (1)
  1. PULMICORT FLEXHALER [Suspect]
     Indication: MESOTHELIOMA
     Dosage: 180 MCG, 2 PUFFS BID
     Route: 055
     Dates: start: 20120110

REACTIONS (3)
  - OFF LABEL USE [None]
  - DRUG DOSE OMISSION [None]
  - HEARING IMPAIRED [None]
